FAERS Safety Report 6887996-3 (Version None)
Quarter: 2010Q3

REPORT INFORMATION
  Report Type: 
  Country: None (occurrence: None)
  Receive Date: 20100730
  Receipt Date: 20100726
  Transmission Date: 20110219
  Serious: Yes (Congenital Anomaly)
  Sender: FDA-Public Use
  Company Number: A0872220A

PATIENT
  Sex: Female

DRUGS (8)
  1. COMBIVIR [Suspect]
     Indication: HIV INFECTION
     Dates: start: 20020514, end: 20030618
  2. VIRACEPT [Suspect]
     Indication: HIV INFECTION
     Dates: start: 20020514
  3. VIRAMUNE [Suspect]
     Indication: HIV INFECTION
     Dates: start: 20011003
  4. DEXAMETHASONE [Concomitant]
  5. IRON [Concomitant]
  6. MEBENDAZOLE [Concomitant]
  7. NYSTATIN [Concomitant]
  8. METRONIDAZOLE [Concomitant]

REACTIONS (6)
  - ATRIAL SEPTAL DEFECT [None]
  - CONGENITAL MITRAL VALVE INCOMPETENCE [None]
  - CONGENITAL PULMONARY VALVE DISORDER [None]
  - DRUG EXPOSURE DURING PREGNANCY [None]
  - PULMONARY VALVE STENOSIS CONGENITAL [None]
  - VENTRICULAR HYPOPLASIA [None]
